FAERS Safety Report 6733536-9 (Version None)
Quarter: 2010Q2

REPORT INFORMATION
  Report Type: 
  Country: None (occurrence: None)
  Receive Date: 20100520
  Receipt Date: 20100520
  Transmission Date: 20101027
  Serious: Yes (Other)
  Sender: FDA-Public Use
  Company Number: None

PATIENT
  Age: 12 Year
  Sex: Female
  Weight: 35.8342 kg

DRUGS (2)
  1. CHILDREN'S ZYRTEC ALLERGY [Suspect]
     Indication: HEADACHE
     Dosage: 1TSP QAM PO
     Route: 048
     Dates: start: 20100301, end: 20100507
  2. CHILDREN'S ZYRTEC ALLERGY [Suspect]
     Indication: MULTIPLE ALLERGIES
     Dosage: 1TSP QAM PO
     Route: 048
     Dates: start: 20100301, end: 20100507

REACTIONS (4)
  - ABNORMAL BEHAVIOUR [None]
  - DEPRESSED MOOD [None]
  - PERSONALITY CHANGE [None]
  - PRODUCT QUALITY ISSUE [None]
